FAERS Safety Report 24103834 (Version 1)
Quarter: 2024Q3

REPORT INFORMATION
  Report Type: Spontaneous
  Country: US (occurrence: US)
  Receive Date: 20240717
  Receipt Date: 20240717
  Transmission Date: 20241016
  Serious: Yes (Hospitalization)
  Sender: MYLAN
  Company Number: US-MYLANLABS-2024M1064890

PATIENT
  Age: 22 Year
  Sex: Female

DRUGS (11)
  1. ETOPOSIDE [Suspect]
     Active Substance: ETOPOSIDE
     Indication: Ewing^s sarcoma
     Dosage: UNK
     Route: 065
     Dates: start: 2002, end: 2007
  2. PREDNISONE [Suspect]
     Active Substance: PREDNISONE
     Indication: Pleuroparenchymal fibroelastosis
     Dosage: UNK
     Route: 065
     Dates: start: 2014
  3. DOXORUBICIN [Suspect]
     Active Substance: DOXORUBICIN
     Indication: Ewing^s sarcoma
     Dosage: UNK
     Route: 065
     Dates: start: 2002, end: 2007
  4. CYCLOPHOSPHAMIDE [Suspect]
     Active Substance: CYCLOPHOSPHAMIDE
     Indication: Ewing^s sarcoma
     Dosage: UNK
     Route: 065
     Dates: start: 2002, end: 2007
  5. IFOSFAMIDE [Suspect]
     Active Substance: IFOSFAMIDE
     Indication: Ewing^s sarcoma
     Dosage: UNK
     Route: 065
     Dates: start: 2002, end: 2007
  6. VINCRISTINE [Suspect]
     Active Substance: VINCRISTINE
     Indication: Ewing^s sarcoma
     Dosage: UNK
     Route: 065
     Dates: start: 2002, end: 2007
  7. IRINOTECAN [Suspect]
     Active Substance: IRINOTECAN
     Indication: Ewing^s sarcoma
     Dosage: UNK
     Route: 065
     Dates: start: 2002, end: 2007
  8. TEMOZOLOMIDE [Suspect]
     Active Substance: TEMOZOLOMIDE
     Indication: Ewing^s sarcoma
     Dosage: UNK
     Route: 065
     Dates: start: 2002, end: 2007
  9. FLUTICASONE PROPIONATE [Suspect]
     Active Substance: FLUTICASONE PROPIONATE
     Indication: Pleuroparenchymal fibroelastosis
     Dosage: UNK
     Route: 065
     Dates: start: 2014
  10. TIOTROPIUM BROMIDE [Suspect]
     Active Substance: TIOTROPIUM BROMIDE
     Indication: Pleuroparenchymal fibroelastosis
     Dosage: UNK
     Route: 065
     Dates: start: 2014
  11. ALBUTEROL [Suspect]
     Active Substance: ALBUTEROL
     Indication: Pleuroparenchymal fibroelastosis
     Dosage: UNK (INHALER)
     Route: 055
     Dates: start: 2014

REACTIONS (2)
  - Pleuroparenchymal fibroelastosis [Recovering/Resolving]
  - Drug ineffective [Unknown]
